FAERS Safety Report 21668486 (Version 3)
Quarter: 2023Q1

REPORT INFORMATION
  Report Type: Spontaneous
  Country: IT (occurrence: IT)
  Receive Date: 20221201
  Receipt Date: 20230203
  Transmission Date: 20230417
  Serious: Yes (Hospitalization, Other)
  Sender: FDA-Public Use
  Company Number: IT-MLMSERVICE-20221121-3930603-1

PATIENT
  Age: 73 Year
  Sex: Female
  Weight: 68 kg

DRUGS (22)
  1. APIXABAN [Suspect]
     Active Substance: APIXABAN
     Indication: Cerebrovascular accident prophylaxis
     Dosage: 2.5 MG PER DAY
     Route: 048
  2. INDAPAMIDE [Suspect]
     Active Substance: INDAPAMIDE
     Indication: Product used for unknown indication
     Dosage: 2.5 MG PER DAY
     Route: 048
  3. LOVASTATIN [Suspect]
     Active Substance: LOVASTATIN
     Indication: Product used for unknown indication
     Dosage: 10 MG PER DAY
     Route: 048
  4. OXALIPLATIN [Suspect]
     Active Substance: OXALIPLATIN
     Indication: Adenocarcinoma of colon
     Dosage: 130 MG/M2 ON DAY ONE, ASSUMED 195 MG OF OXALIPLATIN, EVERY 3 WEEKS
     Route: 042
  5. OXALIPLATIN [Suspect]
     Active Substance: OXALIPLATIN
     Route: 042
  6. FLECAINIDE [Suspect]
     Active Substance: FLECAINIDE
     Indication: Product used for unknown indication
     Dosage: 100 MG PER DAY
     Route: 048
  7. VERAPAMIL [Suspect]
     Active Substance: VERAPAMIL HYDROCHLORIDE
     Indication: Product used for unknown indication
     Dosage: 40 MG PER DAY
     Route: 048
  8. EZETIMIBE [Suspect]
     Active Substance: EZETIMIBE
     Indication: Product used for unknown indication
     Dosage: 10 MG PER DAY
     Route: 048
  9. CAPECITABINE [Suspect]
     Active Substance: CAPECITABINE
     Indication: Adenocarcinoma of colon
     Dosage: 1000 MG/M2, TWICE DAILY FROM DAY 1 TO 14, EVERY THREE WEEKS, CONSIDERING PATIENT BSA THE PATIENT ASS
     Route: 048
  10. CAPECITABINE [Suspect]
     Active Substance: CAPECITABINE
     Route: 048
  11. ASCORBIC ACID\FOLIC ACID\IRON [Suspect]
     Active Substance: ASCORBIC ACID\FOLIC ACID\IRON
     Indication: Product used for unknown indication
     Route: 048
  12. VITAMINS [Suspect]
     Active Substance: VITAMINS
     Indication: Product used for unknown indication
     Dosage: THIAMINE NITRATE-1.4 MG?RIBOFLAVIN--1.6 MG?PANTOTHENIC ACID-9MG?PYRIDOXINE HYDROCHLORIDE-3MG?NICOTIN
     Route: 048
  13. THIAMINE MONONITRATE [Suspect]
     Active Substance: THIAMINE MONONITRATE
     Indication: Product used for unknown indication
  14. CYANOCOBALAMIN [Suspect]
     Active Substance: CYANOCOBALAMIN
     Indication: Product used for unknown indication
  15. NICOTINAMIDE [Suspect]
     Active Substance: NIACINAMIDE
     Indication: Product used for unknown indication
  16. PANTOTHENIC ACID [Suspect]
     Active Substance: PANTOTHENIC ACID
     Indication: Product used for unknown indication
  17. PYRIDOXINE HYDROCHLORIDE [Suspect]
     Active Substance: PYRIDOXINE HYDROCHLORIDE
     Indication: Product used for unknown indication
  18. RIBOFLAVIN [Suspect]
     Active Substance: RIBOFLAVIN
     Indication: Product used for unknown indication
  19. IRON [Suspect]
     Active Substance: IRON
     Indication: Product used for unknown indication
  20. ASCORBIC ACID [Suspect]
     Active Substance: ASCORBIC ACID
     Indication: Product used for unknown indication
  21. ACEROLA [Suspect]
     Active Substance: ACEROLA
     Indication: Product used for unknown indication
  22. ESOMEPRAZOLE [Concomitant]
     Active Substance: ESOMEPRAZOLE
     Indication: Product used for unknown indication
     Dosage: 20 MG PER DAY

REACTIONS (3)
  - Diarrhoea [Recovered/Resolved]
  - Palmar-plantar erythrodysaesthesia syndrome [Recovered/Resolved]
  - Prescribed underdose [Unknown]
